FAERS Safety Report 4973014-0 (Version None)
Quarter: 2006Q2

REPORT INFORMATION
  Report Type: 
  Country: None (occurrence: None)
  Receive Date: 20060410
  Receipt Date: 20060321
  Transmission Date: 20061013
  Serious: Yes (Hospitalization)
  Sender: FDA-Public Use
  Company Number: US200603005597

PATIENT
  Age: 69 Year
  Sex: Female

DRUGS (5)
  1. HUMALOG [Suspect]
     Indication: DIABETES MELLITUS
     Dates: start: 20030101
  2. HUMULIN NPH              (HUMAN) [Suspect]
     Indication: DIABETES MELLITUS
     Dosage: 35 U, DAILY (1/D)
     Dates: start: 20030101
  3. POTASSIUM (POTASSIUM) [Concomitant]
  4. PREDNISONE TAB [Concomitant]
  5. PROCRIT [Concomitant]

REACTIONS (6)
  - BLOOD GLUCOSE INCREASED [None]
  - DIABETES MELLITUS INADEQUATE CONTROL [None]
  - EATING DISORDER [None]
  - INSOMNIA [None]
  - OSTEOMYELITIS [None]
  - TOE AMPUTATION [None]
